FAERS Safety Report 10522028 (Version 1)
Quarter: 2014Q4

REPORT INFORMATION
  Report Type: Spontaneous
  Country: US (occurrence: US)
  Receive Date: 20141016
  Receipt Date: 20141016
  Transmission Date: 20150528
  Serious: Yes (Other)
  Sender: FDA-Public Use
  Company Number: US-BAYER-2014-150570

PATIENT
  Age: 33 Year
  Sex: Female

DRUGS (1)
  1. MIRENA [Suspect]
     Active Substance: LEVONORGESTREL
     Indication: MENORRHAGIA
     Dosage: 20 MCG/24HR, CONT
     Route: 015
     Dates: start: 201404, end: 20141007

REACTIONS (8)
  - Back pain [Not Recovered/Not Resolved]
  - Genital haemorrhage [None]
  - Post procedural haemorrhage [Recovered/Resolved]
  - Ovarian cyst [Not Recovered/Not Resolved]
  - Procedural pain [Not Recovered/Not Resolved]
  - Pain [Not Recovered/Not Resolved]
  - Procedural pain [None]
  - Device dislocation [None]

NARRATIVE: CASE EVENT DATE: 201404
